FAERS Safety Report 12151071 (Version 1)
Quarter: 2016Q1

REPORT INFORMATION
  Report Type: Report from Study
  Country: US (occurrence: US)
  Receive Date: 20160304
  Receipt Date: 20160304
  Transmission Date: 20160526
  Serious: Yes (Hospitalization)
  Sender: FDA-Public Use
  Company Number: US-ACTELION-A-US2016-132099

PATIENT
  Age: 77 Year
  Sex: Female

DRUGS (9)
  1. ATORVASTATIN [Concomitant]
     Active Substance: ATORVASTATIN
  2. METOPROLOL. [Concomitant]
     Active Substance: METOPROLOL
  3. MACITENTAN [Suspect]
     Active Substance: MACITENTAN
     Indication: PULMONARY ARTERIAL HYPERTENSION
     Dosage: 10 MG, QD
     Route: 048
     Dates: start: 20150104
  4. ELIQUIS [Concomitant]
     Active Substance: APIXABAN
  5. CYMBALTA [Concomitant]
     Active Substance: DULOXETINE HYDROCHLORIDE
  6. STRATTERA [Concomitant]
     Active Substance: ATOMOXETINE HYDROCHLORIDE
  7. ATENOLOL. [Concomitant]
     Active Substance: ATENOLOL
  8. ALPRAZOLAM. [Concomitant]
     Active Substance: ALPRAZOLAM
  9. FLECAINIDE [Concomitant]
     Active Substance: FLECAINIDE

REACTIONS (2)
  - Fall [Unknown]
  - Wrist fracture [Recovering/Resolving]

NARRATIVE: CASE EVENT DATE: 20160201
